FAERS Safety Report 17567765 (Version 1)
Quarter: 2020Q1

REPORT INFORMATION
  Report Type: Spontaneous
  Country: US (occurrence: US)
  Receive Date: 20200320
  Receipt Date: 20200320
  Transmission Date: 20200409
  Serious: No
  Sender: FDA-Public Use
  Company Number: US-LEO PHARMA-328792

PATIENT
  Sex: Male

DRUGS (2)
  1. DAIVONEX [Suspect]
     Active Substance: CALCIPOTRIENE
     Indication: BASAL CELL CARCINOMA
     Dosage: MIX 1/2 WITH FLUOROURACIL 5 % CREAM, APPLY AM AND PM FOR 5 DAYS
     Route: 061
     Dates: start: 20200303, end: 20200307
  2. FLUOROURACIL. [Suspect]
     Active Substance: FLUOROURACIL
     Indication: BASAL CELL CARCINOMA
     Dosage: MIX WITH 1/2 WITH CALCIPOTRIENE CREAM APPLY AM AND PM 5 DAYS
     Route: 061
     Dates: start: 20200303, end: 20200307

REACTIONS (8)
  - Pain of skin [Recovering/Resolving]
  - Pruritus [Recovering/Resolving]
  - Product use in unapproved indication [Unknown]
  - Swelling [Recovering/Resolving]
  - Erythema [Recovering/Resolving]
  - Product administered at inappropriate site [Unknown]
  - Periorbital swelling [Recovering/Resolving]
  - Rash [Recovering/Resolving]

NARRATIVE: CASE EVENT DATE: 20200306
